FAERS Safety Report 9247605 (Version 3)
Quarter: 2013Q3

REPORT INFORMATION
  Report Type: Spontaneous
  Country: US (occurrence: US)
  Receive Date: 20130423
  Receipt Date: 20130704
  Transmission Date: 20140515
  Serious: Yes (Hospitalization, Other)
  Sender: FDA-Public Use
  Company Number: US-JNJFOC-20130408997

PATIENT
  Age: 85 Year
  Sex: Male
  Weight: 83.4 kg

DRUGS (4)
  1. XARELTO [Suspect]
     Indication: CEREBROVASCULAR ACCIDENT PROPHYLAXIS
     Route: 048
     Dates: start: 20130309, end: 20130311
  2. XARELTO [Suspect]
     Indication: ATRIAL FIBRILLATION
     Route: 048
     Dates: start: 20130309, end: 20130311
  3. ASPIRIN [Suspect]
     Indication: PRODUCT USED FOR UNKNOWN INDICATION
     Route: 065
     Dates: start: 20130308
  4. LOVENOX [Concomitant]
     Dosage: DOSE: 75 MG
     Route: 058
     Dates: start: 20130307

REACTIONS (5)
  - Muscle haemorrhage [Recovered/Resolved]
  - Haemoglobin decreased [Recovering/Resolving]
  - Cerebrovascular accident [Recovered/Resolved]
  - Retroperitoneal haematoma [Recovered/Resolved]
  - Inappropriate schedule of drug administration [Unknown]
